FAERS Safety Report 23256814 (Version 1)
Quarter: 2023Q4

REPORT INFORMATION
  Report Type: Spontaneous
  Country: US (occurrence: US)
  Receive Date: 20231204
  Receipt Date: 20231204
  Transmission Date: 20240110
  Serious: No
  Sender: FDA-Public Use
  Company Number: US-HIKMA PHARMACEUTICALS USA INC.-US-H14001-23-02070

PATIENT

DRUGS (2)
  1. IPRATROPIUM [Suspect]
     Active Substance: IPRATROPIUM
     Dosage: UNKNOWN
     Route: 065
     Dates: start: 20230602
  2. IPRATROPIUM [Suspect]
     Active Substance: IPRATROPIUM
     Indication: Sinusitis
     Dosage: UNKNOWN
     Route: 065

REACTIONS (2)
  - Off label use [Unknown]
  - SARS-CoV-2 test positive [Unknown]
